FAERS Safety Report 4822540-3 (Version None)
Quarter: 2005Q4

REPORT INFORMATION
  Report Type: 
  Country: None (occurrence: None)
  Receive Date: 20051108
  Receipt Date: 20010517
  Transmission Date: 20060501
  Serious: Yes (Hospitalization)
  Sender: FDA-Public Use
  Company Number: AT-AVENTIS-200112965EU

PATIENT
  Sex: Female
  Weight: 53 kg

DRUGS (5)
  1. RILUZOLE [Suspect]
     Indication: HUNTINGTON'S CHOREA
     Route: 048
     Dates: start: 20010420, end: 20010516
  2. RILUZOLE [Suspect]
     Route: 048
     Dates: start: 20010520
  3. REMERON [Suspect]
     Indication: DEPRESSION
     Route: 048
     Dates: start: 20010127
  4. AGILAN [Concomitant]
     Indication: HYPOTENSION
     Route: 048
     Dates: start: 19960101
  5. SANDOPARIN [Concomitant]
     Indication: THROMBOSIS PROPHYLAXIS
     Route: 058
     Dates: start: 20010517, end: 20010520

REACTIONS (2)
  - ABDOMINAL PAIN [None]
  - CONSTIPATION [None]
